FAERS Safety Report 13673424 (Version 2)
Quarter: 2017Q3

REPORT INFORMATION
  Report Type: Spontaneous
  Country: CH (occurrence: CH)
  Receive Date: 20170621
  Receipt Date: 20170719
  Transmission Date: 20171127
  Serious: Yes (Death, Hospitalization)
  Sender: FDA-Public Use
  Company Number: CH-ROCHE-1951305

PATIENT
  Age: 60 Year
  Sex: Female

DRUGS (7)
  1. PREDNISON [Concomitant]
     Active Substance: PREDNISONE
     Route: 048
  2. TEMESTA (SWITZERLAND) [Concomitant]
     Active Substance: LORAZEPAM
     Route: 065
  3. DOLOPHINE [Concomitant]
     Active Substance: METHADONE HYDROCHLORIDE
     Route: 065
  4. TAVEGYL [Concomitant]
     Active Substance: CLEMASTINE FUMARATE
     Route: 065
  5. KADCYLA [Suspect]
     Active Substance: ADO-TRASTUZUMAB EMTANSINE
     Indication: BREAST CANCER
     Route: 041
     Dates: start: 20130515, end: 20170519
  6. ELTROXIN [Concomitant]
     Active Substance: LEVOTHYROXINE
     Route: 048
     Dates: start: 2013
  7. DYDROGESTERONE [Concomitant]
     Active Substance: DYDROGESTERONE
     Route: 065

REACTIONS (7)
  - Disseminated intravascular coagulation [Fatal]
  - Respiratory failure [Fatal]
  - Acute respiratory distress syndrome [Fatal]
  - Diffuse alveolar damage [Fatal]
  - Pulmonary alveolar haemorrhage [Fatal]
  - Lung infiltration [Fatal]
  - Multiple organ dysfunction syndrome [Fatal]

NARRATIVE: CASE EVENT DATE: 201705
